FAERS Safety Report 5092847-6 (Version None)
Quarter: 2006Q3

REPORT INFORMATION
  Report Type: 
  Country: None (occurrence: None)
  Receive Date: 20060823
  Receipt Date: 20060807
  Transmission Date: 20061208
  Serious: Yes (Hospitalization)
  Sender: FDA-Public Use
  Company Number: 2006BH011715

PATIENT
  Age: 38 Year
  Sex: Male
  Weight: 80 kg

DRUGS (58)
  1. ADVATE (OCTOCOG ALFA) [Suspect]
     Indication: FACTOR VIII DEFICIENCY
     Dosage: SEE IMAGE
     Route: 042
     Dates: start: 20050526, end: 20050526
  2. ADVATE (OCTOCOG ALFA) [Suspect]
     Indication: FACTOR VIII DEFICIENCY
     Dosage: SEE IMAGE
     Route: 042
     Dates: start: 20050608, end: 20050608
  3. ADVATE (OCTOCOG ALFA) [Suspect]
     Indication: FACTOR VIII DEFICIENCY
     Dosage: SEE IMAGE
     Route: 042
     Dates: start: 20050619, end: 20050619
  4. ADVATE (OCTOCOG ALFA) [Suspect]
     Indication: FACTOR VIII DEFICIENCY
     Dosage: SEE IMAGE
     Route: 042
     Dates: start: 20050717, end: 20050717
  5. ADVATE (OCTOCOG ALFA) [Suspect]
     Indication: FACTOR VIII DEFICIENCY
     Dosage: SEE IMAGE
     Route: 042
     Dates: start: 20050801, end: 20050801
  6. ADVATE (OCTOCOG ALFA) [Suspect]
     Indication: FACTOR VIII DEFICIENCY
     Dosage: SEE IMAGE
     Route: 042
     Dates: start: 20050814, end: 20050814
  7. ADVATE (OCTOCOG ALFA) [Suspect]
     Indication: FACTOR VIII DEFICIENCY
     Dosage: SEE IMAGE
     Route: 042
     Dates: start: 20050906, end: 20050913
  8. ADVATE (OCTOCOG ALFA) [Suspect]
     Indication: FACTOR VIII DEFICIENCY
     Dosage: SEE IMAGE
     Route: 042
     Dates: start: 20051202, end: 20051203
  9. ADVATE (OCTOCOG ALFA) [Suspect]
     Indication: FACTOR VIII DEFICIENCY
     Dosage: SEE IMAGE
     Route: 042
     Dates: start: 20051205, end: 20051207
  10. ADVATE (OCTOCOG ALFA) [Suspect]
     Indication: FACTOR VIII DEFICIENCY
     Dosage: SEE IMAGE
     Route: 042
     Dates: start: 20051213, end: 20051213
  11. ADVATE (OCTOCOG ALFA) [Suspect]
     Indication: FACTOR VIII DEFICIENCY
     Dosage: SEE IMAGE
     Route: 042
     Dates: start: 20051214, end: 20051214
  12. ADVATE (OCTOCOG ALFA) [Suspect]
     Indication: FACTOR VIII DEFICIENCY
     Dosage: SEE IMAGE
     Route: 042
     Dates: start: 20051215, end: 20051215
  13. ADVATE (OCTOCOG ALFA) [Suspect]
     Indication: FACTOR VIII DEFICIENCY
     Dosage: SEE IMAGE
     Route: 042
     Dates: start: 20051216, end: 20051216
  14. ADVATE (OCTOCOG ALFA) [Suspect]
     Indication: FACTOR VIII DEFICIENCY
     Dosage: SEE IMAGE
     Route: 042
     Dates: start: 20051217, end: 20051217
  15. ADVATE (OCTOCOG ALFA) [Suspect]
     Indication: FACTOR VIII DEFICIENCY
     Dosage: SEE IMAGE
     Route: 042
     Dates: start: 20051218, end: 20051218
  16. ADVATE (OCTOCOG ALFA) [Suspect]
     Indication: FACTOR VIII DEFICIENCY
     Dosage: SEE IMAGE
     Route: 042
     Dates: start: 20051219, end: 20051219
  17. ADVATE (OCTOCOG ALFA) [Suspect]
     Indication: FACTOR VIII DEFICIENCY
     Dosage: SEE IMAGE
     Route: 042
     Dates: start: 20051220, end: 20051223
  18. ADVATE (OCTOCOG ALFA) [Suspect]
     Indication: FACTOR VIII DEFICIENCY
     Dosage: SEE IMAGE
     Route: 042
     Dates: start: 20051224, end: 20051225
  19. ADVATE (OCTOCOG ALFA) [Suspect]
     Indication: FACTOR VIII DEFICIENCY
     Dosage: SEE IMAGE
     Route: 042
     Dates: start: 20051226, end: 20051226
  20. ADVATE (OCTOCOG ALFA) [Suspect]
     Indication: FACTOR VIII DEFICIENCY
     Dosage: SEE IMAGE
     Route: 042
     Dates: start: 20051230, end: 20051231
  21. ADVATE (OCTOCOG ALFA) [Suspect]
     Indication: FACTOR VIII DEFICIENCY
     Dosage: SEE IMAGE
     Route: 042
     Dates: start: 20060101, end: 20060113
  22. ADVATE (OCTOCOG ALFA) [Suspect]
     Indication: FACTOR VIII DEFICIENCY
     Dosage: SEE IMAGE
     Route: 042
     Dates: start: 20060114, end: 20060114
  23. ADVATE (OCTOCOG ALFA) [Suspect]
     Indication: FACTOR VIII DEFICIENCY
     Dosage: SEE IMAGE
     Route: 042
     Dates: start: 20060307, end: 20060308
  24. ADVATE (OCTOCOG ALFA) [Suspect]
     Indication: FACTOR VIII DEFICIENCY
     Dosage: SEE IMAGE
     Route: 042
     Dates: start: 20060309, end: 20060309
  25. ADVATE (OCTOCOG ALFA) [Suspect]
     Indication: FACTOR VIII DEFICIENCY
     Dosage: SEE IMAGE
     Route: 042
     Dates: start: 20060310, end: 20060310
  26. ADVATE (OCTOCOG ALFA) [Suspect]
     Indication: FACTOR VIII DEFICIENCY
     Dosage: SEE IMAGE
     Route: 042
     Dates: start: 20060310, end: 20060328
  27. ADVATE (OCTOCOG ALFA) [Suspect]
     Indication: FACTOR VIII DEFICIENCY
     Dosage: SEE IMAGE
     Route: 042
     Dates: start: 20060624, end: 20060624
  28. ADVATE (OCTOCOG ALFA) [Suspect]
  29. ADVATE (OCTOCOG ALFA) [Suspect]
  30. ADVATE (OCTOCOG ALFA) [Suspect]
  31. ADVATE (OCTOCOG ALFA) [Suspect]
  32. ADVATE (OCTOCOG ALFA) [Suspect]
  33. ADVATE (OCTOCOG ALFA) [Suspect]
  34. ADVATE (OCTOCOG ALFA) [Suspect]
  35. . [Concomitant]
  36. . [Concomitant]
  37. . [Concomitant]
  38. . [Concomitant]
  39. . [Concomitant]
  40. . [Concomitant]
  41. . [Concomitant]
  42. . [Concomitant]
  43. . [Concomitant]
  44. . [Concomitant]
  45. . [Concomitant]
  46. . [Concomitant]
  47. . [Concomitant]
  48. . [Concomitant]
  49. . [Concomitant]
  50. . [Concomitant]
  51. . [Concomitant]
  52. . [Concomitant]
  53. . [Concomitant]
  54. . [Concomitant]
  55. . [Concomitant]
  56. . [Concomitant]
  57. . [Concomitant]
  58. . [Concomitant]

REACTIONS (3)
  - HEADACHE [None]
  - MEDICAL DEVICE COMPLICATION [None]
  - PERITONEAL CYST [None]
